FAERS Safety Report 23842941 (Version 1)
Quarter: 2024Q2

REPORT INFORMATION
  Report Type: Spontaneous
  Country: ZA (occurrence: ZA)
  Receive Date: 20240510
  Receipt Date: 20240510
  Transmission Date: 20240716
  Serious: Yes (Hospitalization)
  Sender: FDA-Public Use
  Company Number: ZA-TEVA-VS-3193626

PATIENT
  Age: 68 Year
  Sex: Female
  Weight: 78 kg

DRUGS (3)
  1. CARBOPLATIN [Suspect]
     Active Substance: CARBOPLATIN
     Indication: Adenocarcinoma
     Dosage: TIME INTERVAL: 0.33333333 WEEKS: (450MG VIAL)
     Route: 042
     Dates: start: 20231218, end: 20240411
  2. PHV-Paclitaxel [Concomitant]
     Indication: Adenocarcinoma
     Dosage: 300MG
     Route: 042
     Dates: start: 20231218, end: 20240411
  3. PHV-Paclitaxel [Concomitant]
     Indication: Adenocarcinoma
     Dosage: 30MG
     Route: 042
     Dates: start: 20231218, end: 20240411

REACTIONS (1)
  - Neutropenic sepsis [Not Recovered/Not Resolved]

NARRATIVE: CASE EVENT DATE: 20240419
